FAERS Safety Report 10713759 (Version 5)
Quarter: 2015Q4

REPORT INFORMATION
  Report Type: Spontaneous
  Country: US (occurrence: US)
  Receive Date: 20150115
  Receipt Date: 20151006
  Transmission Date: 20160304
  Serious: Yes (Hospitalization)
  Sender: FDA-Public Use
  Company Number: US-PFIZER INC-2015011319

PATIENT
  Age: 78 Year
  Sex: Female
  Weight: 50 kg

DRUGS (9)
  1. DILANTIN [Suspect]
     Active Substance: PHENYTOIN
     Dosage: 460MG MON-FRI
     Route: 048
     Dates: start: 201411
  2. DILANTIN [Suspect]
     Active Substance: PHENYTOIN
     Dosage: 200 MG, 2X/DAY (200 MG IN MORNING AND 200 MG IN EVENING)
  3. DILANTIN [Suspect]
     Active Substance: PHENYTOIN
     Indication: EPILEPSY
     Dosage: 30 MG 2 QHS
     Route: 048
     Dates: start: 201411
  4. DILANTIN [Suspect]
     Active Substance: PHENYTOIN
     Dosage: 400 MG, 1X/DAY
     Route: 048
     Dates: start: 201411
  5. DILANTIN [Suspect]
     Active Substance: PHENYTOIN
     Dosage: 460 MG, EVERY DAY
     Route: 048
  6. KEPPRA [Concomitant]
     Active Substance: LEVETIRACETAM
     Indication: EPILEPSY
     Dosage: 1000 MG, 2X/DAY (BID)
  7. DILANTIN [Suspect]
     Active Substance: PHENYTOIN
     Indication: SEIZURE
     Dosage: 100 MG, 4X/DAY
     Route: 048
     Dates: start: 201411
  8. DILANTIN [Suspect]
     Active Substance: PHENYTOIN
     Dosage: 560 MG, ON THE THIRD DAY
     Route: 048
  9. KEPPRA [Concomitant]
     Active Substance: LEVETIRACETAM
     Indication: SEIZURE

REACTIONS (8)
  - Anticonvulsant drug level increased [Recovered/Resolved]
  - Anticonvulsant drug level decreased [Recovered/Resolved]
  - Malaise [Unknown]
  - Product quality issue [Recovered/Resolved]
  - Depression [Unknown]
  - Balance disorder [Unknown]
  - Asthenia [Unknown]
  - Drug ineffective [Unknown]

NARRATIVE: CASE EVENT DATE: 201411
